FAERS Safety Report 8083168-8 (Version None)
Quarter: 2012Q1

REPORT INFORMATION
  Report Type: 
  Country: None (occurrence: None)
  Receive Date: 20120127
  Receipt Date: 20110208
  Transmission Date: 20120608
  Serious: No
  Sender: FDA-Public Use
  Company Number: US-ABBOTT-11P-163-0704626-00

PATIENT
  Sex: Female
  Weight: 88.53 kg

DRUGS (4)
  1. NAPROXEN (ALEVE) [Concomitant]
     Indication: PAIN
     Dosage: AS NEEDED
  2. HUMIRA [Suspect]
     Indication: RHEUMATOID ARTHRITIS
     Dates: start: 20101001
  3. IBUPROFEN [Concomitant]
     Indication: PAIN
     Dosage: AS NEEDED
  4. ACETAMINOPHEN [Concomitant]
     Indication: PAIN
     Dosage: AS NEEDED

REACTIONS (2)
  - INJECTION SITE PAIN [None]
  - INJECTION SITE HAEMATOMA [None]
